FAERS Safety Report 19854362 (Version 2)
Quarter: 2021Q4

REPORT INFORMATION
  Report Type: Spontaneous
  Country: US (occurrence: US)
  Receive Date: 20210920
  Receipt Date: 20211027
  Transmission Date: 20220303
  Serious: Yes (Hospitalization, Other)
  Sender: FDA-Public Use
  Company Number: US-AUROBINDO-AUR-APL-2021-029991

PATIENT
  Age: 72 Year
  Sex: Female

DRUGS (1)
  1. MONTELUKAST [Suspect]
     Active Substance: MONTELUKAST SODIUM
     Indication: Product used for unknown indication
     Dosage: UNK
     Route: 065

REACTIONS (8)
  - Hallucination [Unknown]
  - Anxiety [Unknown]
  - Amnesia [Unknown]
  - Condition aggravated [Unknown]
  - Depression [Unknown]
  - Product packaging quantity issue [Unknown]
  - Extra dose administered [Unknown]
  - Suspected product quality issue [Unknown]
